FAERS Safety Report 25040249 (Version 1)
Quarter: 2025Q1

REPORT INFORMATION
  Report Type: Spontaneous
  Country: US (occurrence: US)
  Receive Date: 20250305
  Receipt Date: 20250305
  Transmission Date: 20250409
  Serious: Yes (Other)
  Sender: GRIFOLS
  Company Number: US-IGSA-BIG0033040

PATIENT
  Age: 70 Year
  Sex: Male

DRUGS (2)
  1. VISTASEAL [Suspect]
     Active Substance: FIBRINOGEN HUMAN\HUMAN THROMBIN
     Indication: Tumour excision
     Dates: start: 20250112, end: 2025
  2. VISTASEAL [Suspect]
     Active Substance: FIBRINOGEN HUMAN\HUMAN THROMBIN
     Indication: Intentional product use issue

REACTIONS (2)
  - Cerebral mass effect [Recovering/Resolving]
  - Brain herniation [Recovering/Resolving]

NARRATIVE: CASE EVENT DATE: 20250114
